FAERS Safety Report 4638909-6 (Version None)
Quarter: 2005Q2

REPORT INFORMATION
  Report Type: 
  Country: None (occurrence: None)
  Receive Date: 20050415
  Receipt Date: 20050331
  Transmission Date: 20051028
  Serious: Yes (Hospitalization)
  Sender: FDA-Public Use
  Company Number: FR_041205454

PATIENT
  Age: 69 Year
  Sex: Female

DRUGS (1)
  1. PROZAC [Suspect]
     Indication: DEPRESSION
     Dosage: 20 MG/1 DAY
     Dates: start: 20031201, end: 20041216

REACTIONS (3)
  - OPTIC NERVE SHEATH HAEMORRHAGE [None]
  - PAPILLOEDEMA [None]
  - VISUAL ACUITY REDUCED [None]
